FAERS Safety Report 6119806-6 (Version None)
Quarter: 2009Q1

REPORT INFORMATION
  Report Type: 
  Country: None (occurrence: None)
  Receive Date: 20090316
  Receipt Date: 20090313
  Transmission Date: 20090719
  Serious: Yes (Death, Hospitalization, Other)
  Sender: FDA-Public Use
  Company Number: US-ASTRAZENECA-2008UW26339

PATIENT
  Age: 7106 Day
  Sex: Male

DRUGS (10)
  1. SEROQUEL [Suspect]
     Indication: MAJOR DEPRESSION
     Route: 048
     Dates: start: 20040101, end: 20060901
  2. SEROQUEL [Suspect]
     Indication: SCHIZOPHRENIA
     Route: 048
     Dates: start: 20040101, end: 20060901
  3. SEROQUEL [Suspect]
     Indication: BIPOLAR DISORDER
     Route: 048
     Dates: start: 20040101, end: 20060901
  4. ZYPREXA [Concomitant]
     Dates: start: 20050101
  5. DEPAKOTE [Concomitant]
     Dates: start: 20040101
  6. LEXAPRO [Concomitant]
     Dosage: 10-30MG
     Dates: start: 20030101, end: 20050101
  7. CLONAZEPAM [Concomitant]
     Dates: start: 20070101
  8. AMITRIPTYLINE HCL TAB [Concomitant]
     Dates: start: 20030101, end: 20070101
  9. VALIUM [Concomitant]
     Dates: start: 20070101
  10. EFFEXOR [Concomitant]
     Dates: start: 20070101

REACTIONS (26)
  - ABDOMINAL PAIN [None]
  - ANAEMIA [None]
  - ANOREXIA [None]
  - ASTHENIA [None]
  - CHEMICAL POISONING [None]
  - CONSTIPATION [None]
  - DEATH [None]
  - DEHYDRATION [None]
  - DIZZINESS [None]
  - EATING DISORDER [None]
  - FATIGUE [None]
  - GROIN PAIN [None]
  - HEPATIC ENZYME INCREASED [None]
  - HEPATIC FAILURE [None]
  - HEPATITIS ACUTE [None]
  - HYPOGLYCAEMIA [None]
  - HYPOKALAEMIA [None]
  - ILEUS [None]
  - MULTIPLE DRUG OVERDOSE [None]
  - OVERDOSE [None]
  - PAIN IN EXTREMITY [None]
  - PANCREATITIS CHRONIC [None]
  - PSYCHOTIC DISORDER [None]
  - RENAL FAILURE ACUTE [None]
  - RENAL FUNCTION TEST [None]
  - SUICIDE ATTEMPT [None]
